FAERS Safety Report 16528756 (Version 1)
Quarter: 2019Q3

REPORT INFORMATION
  Report Type: Spontaneous
  Country: US (occurrence: US)
  Receive Date: 20190703
  Receipt Date: 20190703
  Transmission Date: 20191004
  Serious: No
  Sender: FDA-Public Use
  Company Number: US-TEVA-2019-US-1062364

PATIENT
  Age: 70 Year
  Sex: Female

DRUGS (4)
  1. FISH OIL [Concomitant]
     Active Substance: FISH OIL
  2. ALEVE [Concomitant]
     Active Substance: NAPROXEN SODIUM
     Dosage: OCCASIONALLY AS NEEDED
  3. OMEPRAZOLE. [Suspect]
     Active Substance: OMEPRAZOLE
     Route: 065
  4. ASPIRIN. [Concomitant]
     Active Substance: ASPIRIN
     Dosage: IN MORNING

REACTIONS (1)
  - Drug ineffective [Unknown]
